FAERS Safety Report 4489223-3 (Version None)
Quarter: 2004Q4

REPORT INFORMATION
  Report Type: 
  Country: None (occurrence: None)
  Receive Date: 20041029
  Receipt Date: 20041025
  Transmission Date: 20050328
  Serious: Yes (Disabling, Other)
  Sender: FDA-Public Use
  Company Number: GB-MERCK-0410GBR00279

PATIENT
  Age: 67 Year
  Sex: Female
  Weight: 79 kg

DRUGS (3)
  1. SIMVASTATIN [Suspect]
     Indication: BLOOD CHOLESTEROL INCREASED
     Route: 048
     Dates: start: 20040209, end: 20040524
  2. MELOXICAM [Concomitant]
     Route: 065
     Dates: start: 20040618
  3. LANSOPRAZOLE [Concomitant]
     Route: 065
     Dates: end: 20040924

REACTIONS (1)
  - SCLERODERMA [None]
